FAERS Safety Report 25437725 (Version 1)
Quarter: 2025Q2

REPORT INFORMATION
  Report Type: Spontaneous
  Country: US (occurrence: US)
  Receive Date: 20250616
  Receipt Date: 20250616
  Transmission Date: 20250717
  Serious: No
  Sender: ENDO
  Company Number: US-ENDO USA, INC.-2024-002769

PATIENT

DRUGS (6)
  1. SUPPRELIN LA [Suspect]
     Active Substance: HISTRELIN ACETATE
     Indication: Precocious puberty
     Route: 058
  2. SUPPRELIN LA [Suspect]
     Active Substance: HISTRELIN ACETATE
     Indication: Precocious puberty
     Route: 058
  3. SUPPRELIN LA [Suspect]
     Active Substance: HISTRELIN ACETATE
     Indication: Precocious puberty
     Route: 058
  4. SUPPRELIN LA [Suspect]
     Active Substance: HISTRELIN ACETATE
     Route: 058
  5. SUPPRELIN LA [Suspect]
     Active Substance: HISTRELIN ACETATE
     Route: 058
  6. SUPPRELIN LA [Suspect]
     Active Substance: HISTRELIN ACETATE
     Route: 058

REACTIONS (2)
  - Procedural pain [Unknown]
  - Scar [Unknown]
